FAERS Safety Report 7228178-5 (Version None)
Quarter: 2011Q1

REPORT INFORMATION
  Report Type: 
  Country: None (occurrence: None)
  Receive Date: 20110114
  Receipt Date: 20110107
  Transmission Date: 20110831
  Serious: Yes (Other)
  Sender: FDA-Public Use
  Company Number: JP-PFIZER INC-2010179280

PATIENT
  Age: 72 Year
  Sex: Male

DRUGS (11)
  1. PRAMIPEXOLE [Concomitant]
     Dosage: UNK
  2. ADALAT CC [Concomitant]
     Indication: HYPERTENSION
     Dosage: UNK
     Route: 048
  3. REQUIP [Concomitant]
     Dosage: UNK
  4. SYMMETREL [Concomitant]
     Dosage: UNK
  5. DETRUSITOL [Suspect]
     Indication: HYPERTONIC BLADDER
     Dosage: 4 MG, 1X/DAY
     Route: 048
     Dates: start: 20101210
  6. ASPIRIN [Concomitant]
     Dosage: UNK
     Route: 048
  7. EC DOPARL [Concomitant]
     Dosage: UNK
  8. BLOPRESS [Concomitant]
     Indication: HYPERTENSION
     Dosage: UNK
     Route: 048
  9. SELEGILINE HYDROCHLORIDE [Suspect]
     Indication: PARKINSON'S DISEASE
     Dosage: UNK
  10. CASODEX [Concomitant]
     Indication: PROSTATE CANCER
     Dosage: UNK
     Route: 048
  11. FLIVAS [Concomitant]
     Indication: BENIGN PROSTATIC HYPERPLASIA
     Dosage: UNK
     Route: 048

REACTIONS (1)
  - HALLUCINATION, VISUAL [None]
